FAERS Safety Report 10574312 (Version 1)
Quarter: 2014Q4

REPORT INFORMATION
  Report Type: Spontaneous
  Country: US (occurrence: US)
  Receive Date: 20141110
  Receipt Date: 20141110
  Transmission Date: 20150529
  Serious: No
  Sender: FDA-Public Use
  Company Number: US-009507513-1411USA003948

PATIENT
  Age: 55 Year
  Sex: Male

DRUGS (2)
  1. TEMODAR [Suspect]
     Active Substance: TEMOZOLOMIDE
     Indication: GLIOMA
     Dosage: 300 MG/M2, DAILY FOT THREE CONSECUTIVE DAYS, 28 DAYS CYCLE
     Route: 048
  2. TEMODAR [Suspect]
     Active Substance: TEMOZOLOMIDE
     Dosage: 50 MG/M2, QD
     Route: 048

REACTIONS (1)
  - Inappropriate schedule of drug administration [Unknown]
